FAERS Safety Report 8919352 (Version 1)
Quarter: 2012Q4

REPORT INFORMATION
  Report Type: 
  Country: US (occurrence: US)
  Receive Date: 20121121
  Receipt Date: 20121121
  Transmission Date: 20130627
  Serious: Yes (Other)
  Sender: FDA-Public Use
  Company Number: US-PFIZER INC-2012288022

PATIENT
  Age: 52 Year
  Sex: Female
  Weight: 73.92 kg

DRUGS (2)
  1. INLYTA [Suspect]
     Indication: RENAL CELL CARCINOMA
     Dosage: 5 mg, 2x/day
     Dates: start: 201210, end: 20121105
  2. PHENYTOIN [Concomitant]
     Indication: SEIZURE
     Dosage: 100 mg, 2x/day
     Dates: start: 201208

REACTIONS (2)
  - Hypertension [Recovered/Resolved]
  - Headache [Recovered/Resolved]
